FAERS Safety Report 19144879 (Version 1)
Quarter: 2021Q2

REPORT INFORMATION
  Report Type: Spontaneous
  Country: US (occurrence: US)
  Receive Date: 20210416
  Receipt Date: 20210416
  Transmission Date: 20210717
  Serious: No
  Sender: FDA-Public Use
  Company Number: US-BAYER-2021-123583

PATIENT
  Sex: Female

DRUGS (1)
  1. KYLEENA [Suspect]
     Active Substance: LEVONORGESTREL
     Dosage: 17.5 ?G PER DAY,CONTINUOUSLY
     Route: 015

REACTIONS (5)
  - Breast tenderness [None]
  - Abdominal distension [None]
  - Gait disturbance [None]
  - Pelvic pain [None]
  - Dyspnoea [None]
